FAERS Safety Report 13111752 (Version 6)
Quarter: 2018Q3

REPORT INFORMATION
  Report Type: Spontaneous
  Country: CA (occurrence: CA)
  Receive Date: 20170113
  Receipt Date: 20180828
  Transmission Date: 20181010
  Serious: Yes (Hospitalization)
  Sender: FDA-Public Use
  Company Number: CA-ROCHE-1876541

PATIENT
  Age: 53 Year
  Sex: Female

DRUGS (58)
  1. HUMIRA [Suspect]
     Active Substance: ADALIMUMAB
     Dosage: SOLUTION FOR INJECTION IN PRE?FILLED SYRINGE
     Route: 058
  2. ENBREL [Suspect]
     Active Substance: ETANERCEPT
     Indication: RHEUMATOID ARTHRITIS
     Route: 065
     Dates: start: 20080619, end: 2011
  3. METHOTREXATE. [Suspect]
     Active Substance: METHOTREXATE
     Route: 065
  4. METHOTREXATE. [Suspect]
     Active Substance: METHOTREXATE
     Route: 058
  5. RITUXAN [Suspect]
     Active Substance: RITUXIMAB
     Indication: PRODUCT USED FOR UNKNOWN INDICATION
     Route: 065
  6. METHOTREXATE SODIUM. [Suspect]
     Active Substance: METHOTREXATE SODIUM
     Route: 065
     Dates: start: 201105
  7. HYDROXYCHLOROQUINE [Suspect]
     Active Substance: HYDROXYCHLOROQUINE
     Indication: RHEUMATOID ARTHRITIS
     Dosage: DURATION 738 DAYS
     Route: 065
  8. LEFLUNOMIDE. [Suspect]
     Active Substance: LEFLUNOMIDE
     Indication: RHEUMATOID ARTHRITIS
     Route: 065
     Dates: start: 2005, end: 201407
  9. METHOTREXATE. [Suspect]
     Active Substance: METHOTREXATE
     Route: 058
  10. METHOTREXATE. [Suspect]
     Active Substance: METHOTREXATE
     Route: 058
  11. CICLOSPORIN [Concomitant]
     Active Substance: CYCLOSPORINE
     Route: 065
     Dates: end: 20160420
  12. RITUXAN [Suspect]
     Active Substance: RITUXIMAB
     Indication: RHEUMATOID ARTHRITIS
     Dosage: THERAPY DURATION: 12 MONTHS
     Route: 042
     Dates: start: 200908
  13. METHOTREXATE SODIUM. [Suspect]
     Active Substance: METHOTREXATE SODIUM
     Route: 058
  14. METHOTREXATE SODIUM. [Suspect]
     Active Substance: METHOTREXATE SODIUM
     Route: 058
  15. ORENCIA [Suspect]
     Active Substance: ABATACEPT
     Indication: RHEUMATOID ARTHRITIS
     Route: 065
     Dates: start: 2012, end: 2013
  16. ORENCIA [Suspect]
     Active Substance: ABATACEPT
     Dosage: THERAPY DURATION: 9 MONTHS
     Route: 065
     Dates: start: 2013
  17. HYDROXYCHLOROQUINE [Suspect]
     Active Substance: HYDROXYCHLOROQUINE
     Route: 048
  18. METHOTREXATE. [Suspect]
     Active Substance: METHOTREXATE
     Route: 065
  19. METHOTREXATE SODIUM. [Suspect]
     Active Substance: METHOTREXATE SODIUM
     Route: 058
     Dates: start: 200908
  20. METHOTREXATE SODIUM. [Suspect]
     Active Substance: METHOTREXATE SODIUM
     Route: 065
  21. METHOTREXATE SODIUM. [Suspect]
     Active Substance: METHOTREXATE SODIUM
     Route: 048
  22. METHOTREXATE SODIUM. [Suspect]
     Active Substance: METHOTREXATE SODIUM
     Route: 058
  23. ENBREL [Suspect]
     Active Substance: ETANERCEPT
     Route: 065
  24. APO?HYDROXYQUINE [Suspect]
     Active Substance: HYDROXYCHLOROQUINE SULFATE
     Indication: RHEUMATOID ARTHRITIS
     Route: 048
  25. METHOTREXATE. [Suspect]
     Active Substance: METHOTREXATE
     Route: 065
  26. METHOTREXATE. [Suspect]
     Active Substance: METHOTREXATE
     Route: 065
  27. METHOTREXATE. [Suspect]
     Active Substance: METHOTREXATE
     Route: 058
  28. METHOTREXATE. [Suspect]
     Active Substance: METHOTREXATE
     Route: 065
  29. ACTEMRA [Suspect]
     Active Substance: TOCILIZUMAB
     Route: 065
     Dates: start: 201110
  30. METHOTREXATE SODIUM. [Suspect]
     Active Substance: METHOTREXATE SODIUM
     Indication: RHEUMATOID ARTHRITIS
     Route: 048
     Dates: start: 1989
  31. ALENDRONATE SODIUM. [Suspect]
     Active Substance: ALENDRONATE SODIUM
     Route: 065
  32. LEFLUNOMIDE. [Suspect]
     Active Substance: LEFLUNOMIDE
     Dosage: FILM?COATED TABLET
     Route: 048
  33. ACTEMRA [Suspect]
     Active Substance: TOCILIZUMAB
     Indication: RHEUMATOID ARTHRITIS
     Route: 042
  34. METHOTREXATE. [Suspect]
     Active Substance: METHOTREXATE
     Route: 048
  35. METHOTREXATE. [Suspect]
     Active Substance: METHOTREXATE
     Route: 065
  36. METHOTREXATE. [Suspect]
     Active Substance: METHOTREXATE
     Route: 058
  37. METHOTREXATE. [Suspect]
     Active Substance: METHOTREXATE
     Route: 058
  38. PREDNISONE. [Concomitant]
     Active Substance: PREDNISONE
     Route: 065
     Dates: start: 201303
  39. RITUXAN [Suspect]
     Active Substance: RITUXIMAB
     Route: 042
  40. CODEINE [Suspect]
     Active Substance: CODEINE
     Indication: PRODUCT USED FOR UNKNOWN INDICATION
     Route: 065
  41. METHOTREXATE SODIUM. [Suspect]
     Active Substance: METHOTREXATE SODIUM
     Route: 058
     Dates: start: 200806
  42. METHOTREXATE SODIUM. [Suspect]
     Active Substance: METHOTREXATE SODIUM
     Route: 065
     Dates: start: 201501
  43. METHOTREXATE SODIUM. [Suspect]
     Active Substance: METHOTREXATE SODIUM
     Route: 058
  44. REMICADE [Suspect]
     Active Substance: INFLIXIMAB
     Indication: PRODUCT USED FOR UNKNOWN INDICATION
     Dosage: THERAPY DURATION: 365 NOS?POWDER FOR INTRAVESICAL SOLUTION
     Route: 065
     Dates: start: 2011, end: 2012
  45. METHOTREXATE. [Suspect]
     Active Substance: METHOTREXATE
     Indication: RHEUMATOID ARTHRITIS
     Route: 058
  46. METHOTREXATE. [Suspect]
     Active Substance: METHOTREXATE
     Route: 058
  47. METHOTREXATE. [Suspect]
     Active Substance: METHOTREXATE
     Route: 065
  48. METHOTREXATE. [Suspect]
     Active Substance: METHOTREXATE
     Route: 058
  49. METHOTREXATE. [Suspect]
     Active Substance: METHOTREXATE
     Route: 065
  50. HUMIRA [Suspect]
     Active Substance: ADALIMUMAB
     Indication: RHEUMATOID ARTHRITIS
     Dosage: CYCLICAL
     Route: 065
     Dates: start: 20081118, end: 20090616
  51. SULFASALAZINE. [Suspect]
     Active Substance: SULFASALAZINE
     Indication: RHEUMATOID ARTHRITIS
     Route: 065
  52. METHOTREXATE. [Suspect]
     Active Substance: METHOTREXATE
     Route: 065
  53. ACTEMRA [Suspect]
     Active Substance: TOCILIZUMAB
     Indication: RHEUMATOID ARTHRITIS
     Route: 065
     Dates: start: 201101
  54. ALENDRONATE SODIUM. [Suspect]
     Active Substance: ALENDRONATE SODIUM
     Indication: PRODUCT USED FOR UNKNOWN INDICATION
     Route: 065
  55. MYOCHRYSINE [Suspect]
     Active Substance: GOLD SODIUM THIOMALATE
     Indication: RHEUMATOID ARTHRITIS
     Route: 051
     Dates: start: 1989
  56. METHOTREXATE. [Suspect]
     Active Substance: METHOTREXATE
     Route: 065
  57. METHOTREXATE. [Suspect]
     Active Substance: METHOTREXATE
     Route: 048
  58. METHOTREXATE. [Suspect]
     Active Substance: METHOTREXATE
     Route: 065

REACTIONS (25)
  - Drug eruption [Not Recovered/Not Resolved]
  - Rheumatoid arthritis [Unknown]
  - Peripheral swelling [Not Recovered/Not Resolved]
  - Panniculitis [Not Recovered/Not Resolved]
  - Rash pruritic [Not Recovered/Not Resolved]
  - Alanine aminotransferase increased [Not Recovered/Not Resolved]
  - Granuloma skin [Not Recovered/Not Resolved]
  - Ulcer [Not Recovered/Not Resolved]
  - Blood parathyroid hormone decreased [Not Recovered/Not Resolved]
  - Skin ulcer [Not Recovered/Not Resolved]
  - Skin necrosis [Not Recovered/Not Resolved]
  - Rheumatoid nodule [Not Recovered/Not Resolved]
  - Drug hypersensitivity [Not Recovered/Not Resolved]
  - Drug ineffective [Unknown]
  - Infusion related reaction [Not Recovered/Not Resolved]
  - Inflammation [Not Recovered/Not Resolved]
  - Loss of personal independence in daily activities [Not Recovered/Not Resolved]
  - Therapeutic response decreased [Not Recovered/Not Resolved]
  - Hypercalcaemia [Not Recovered/Not Resolved]
  - Basal cell carcinoma [Not Recovered/Not Resolved]
  - Aspartate aminotransferase increased [Not Recovered/Not Resolved]
  - C-reactive protein increased [Not Recovered/Not Resolved]
  - Red blood cell sedimentation rate increased [Not Recovered/Not Resolved]
  - Rash [Unknown]
  - Hypersensitivity [Not Recovered/Not Resolved]
